FAERS Safety Report 7162199-6 (Version None)
Quarter: 2010Q4

REPORT INFORMATION
  Report Type: 
  Country: None (occurrence: None)
  Receive Date: 20101215
  Receipt Date: 20090923
  Transmission Date: 20110411
  Serious: Yes (Life-Threatening, Hospitalization)
  Sender: FDA-Public Use
  Company Number: ES-PFIZER INC-2009238575

PATIENT
  Age: 74 Year

DRUGS (6)
  1. LYRICA [Suspect]
     Dosage: 75 MG, 1X/DAY
     Route: 048
     Dates: start: 20090114, end: 20090120
  2. LYRICA [Interacting]
     Dosage: 75 MG, 2X/DAY
     Route: 048
     Dates: start: 20090121, end: 20090124
  3. ZOLPIDEM [Interacting]
     Dosage: UNK
     Route: 048
     Dates: end: 20090124
  4. DUTASTERIDE [Concomitant]
     Indication: BENIGN PROSTATIC HYPERPLASIA
     Dosage: UNK
     Route: 048
  5. ACOVIL [Concomitant]
     Indication: BLOOD PRESSURE INCREASED
     Dosage: 1.25 MG, UNK
  6. TROMALYT [Concomitant]
     Indication: MYOCARDIAL ISCHAEMIA
     Dosage: 300 MG, 1X/DAY
     Route: 048

REACTIONS (2)
  - DRUG INTERACTION [None]
  - RESPIRATORY FAILURE [None]
